FAERS Safety Report 24654842 (Version 1)
Quarter: 2024Q4

REPORT INFORMATION
  Report Type: Spontaneous
  Country: US (occurrence: US)
  Receive Date: 20241122
  Receipt Date: 20241122
  Transmission Date: 20250114
  Serious: Yes (Hospitalization, Other)
  Sender: PURDUE
  Company Number: US-PURDUE PHARMA-USA-2024-0313457

PATIENT
  Age: 17 Year
  Sex: Male

DRUGS (7)
  1. OXYCODONE HYDROCHLORIDE [Suspect]
     Active Substance: OXYCODONE HYDROCHLORIDE
     Indication: Pain management
     Dosage: 10 MILLIGRAM, Q4H PRN
     Route: 065
  2. OXYCODONE HYDROCHLORIDE [Suspect]
     Active Substance: OXYCODONE HYDROCHLORIDE
     Dosage: INTRANASALLY
     Route: 045
  3. OXYCODONE HYDROCHLORIDE [Suspect]
     Active Substance: OXYCODONE HYDROCHLORIDE
     Indication: Pain management
     Dosage: 60ML OF ORAL SOLUTION OF OXYCODONE 1MG/ML FOR 5ML DOSES EVERY FOUR HOURS AS NEEDED WITH ZERO PRESCRI
     Route: 048
  4. FENTANYL [Suspect]
     Active Substance: FENTANYL
     Indication: Pain management
     Dosage: THREE FENTANYL 25MCG INJECTIONS
     Route: 065
  5. FENTANYL [Suspect]
     Active Substance: FENTANYL
     Dosage: 60MCG/HR FOR THREE DAYS
     Route: 065
  6. FENTANYL [Suspect]
     Active Substance: FENTANYL
     Dosage: INTRANASALLY
     Route: 045
  7. ACETAMINOPHEN [Suspect]
     Active Substance: ACETAMINOPHEN
     Indication: Pain management
     Dosage: UNK
     Route: 065

REACTIONS (15)
  - Suicidal ideation [Unknown]
  - Post-traumatic stress disorder [Unknown]
  - Decreased interest [Unknown]
  - Sleep disorder [Unknown]
  - Nightmare [Unknown]
  - Temperature intolerance [Unknown]
  - Temperature intolerance [Unknown]
  - Intentional product use issue [Unknown]
  - Decreased appetite [Unknown]
  - Depressed mood [Unknown]
  - Agitation [Unknown]
  - Tremor [Unknown]
  - Vomiting [Unknown]
  - Depression [Unknown]
  - Drug withdrawal syndrome [Unknown]
